FAERS Safety Report 9500064 (Version 1)
Quarter: 2013Q1

REPORT INFORMATION
  Report Type: Spontaneous
  Country: US (occurrence: None)
  Receive Date: 20130107
  Receipt Date: 20130107
  Transmission Date: 20140127
  Serious: No
  Sender: FDA-Public Use
  Company Number: PHEH2012US020931

PATIENT
  Age: 65 Year
  Sex: Female

DRUGS (2)
  1. GILENYA (FINGOLIMOD) CAPSULE, 0.5 MG [Suspect]
     Route: 048
     Dates: start: 20121022
  2. ADVAIR (FLUTICASONE PROPIONATE, SALMETEROL XINAFOATE) [Suspect]

REACTIONS (3)
  - Fatigue [None]
  - Dyspnoea [None]
  - Dizziness [None]
